FAERS Safety Report 18715247 (Version 1)
Quarter: 2021Q1

REPORT INFORMATION
  Report Type: Spontaneous
  Country: US (occurrence: US)
  Receive Date: 20210107
  Receipt Date: 20210107
  Transmission Date: 20210419
  Serious: No
  Sender: FDA-Public Use
  Company Number: US-JNJFOC-20201249598

PATIENT
  Age: 31 Year
  Sex: Male
  Weight: 72.64 kg

DRUGS (1)
  1. MENS ROGAINE EXTRA STRENGTH [Suspect]
     Active Substance: MINOXIDIL
     Indication: ALOPECIA
     Dosage: DOSE: HALF A CAPFUL?PRODUCT LAST ADMINISTERED ON 19?DEC?2020
     Route: 061
     Dates: start: 20201201

REACTIONS (3)
  - Underdose [Unknown]
  - Application site rash [Recovering/Resolving]
  - Inappropriate schedule of product administration [Unknown]

NARRATIVE: CASE EVENT DATE: 20201201
